FAERS Safety Report 8983034 (Version 1)
Quarter: 2012Q4

REPORT INFORMATION
  Report Type: 
  Country: US (occurrence: US)
  Receive Date: 20121224
  Receipt Date: 20121224
  Transmission Date: 20130627
  Serious: Yes (Hospitalization, Other)
  Sender: FDA-Public Use
  Company Number: PHHY2012US095498

PATIENT
  Age: 40 Year
  Sex: Male
  Weight: 65 kg

DRUGS (8)
  1. CUBICIN [Suspect]
     Indication: STAPHYLOCOCCAL INFECTION
     Dosage: 8 mg/kg, QD
  2. VANCOMYCIN [Suspect]
  3. RIFAMPICIN [Suspect]
     Dosage: 600 mg
  4. GENTAMICIN [Concomitant]
     Indication: STAPHYLOCOCCAL INFECTION
     Dosage: 80 mg, Q8H
  5. CEFEPIME [Concomitant]
  6. IMIPENEM [Concomitant]
  7. LINEZOLID [Concomitant]
     Dosage: 600 mg, Q12H
  8. SULFAMETHOXAZOLE W/TRIMETHOPRIM [Concomitant]

REACTIONS (11)
  - Multi-organ failure [Unknown]
  - Cardiac failure [Unknown]
  - Renal failure [Unknown]
  - Thrombocytopenia [Unknown]
  - Pyrexia [Unknown]
  - Antimicrobial susceptibility test resistant [Unknown]
  - Streptococcal bacteraemia [Unknown]
  - Device related infection [Unknown]
  - Systemic candida [Unknown]
  - Treatment failure [Unknown]
  - Drug ineffective [Unknown]
